FAERS Safety Report 10155854 (Version 1)
Quarter: 2014Q2

REPORT INFORMATION
  Report Type: Spontaneous
  Country: FR (occurrence: FR)
  Receive Date: 20140506
  Receipt Date: 20140506
  Transmission Date: 20141212
  Serious: Yes (Hospitalization)
  Sender: FDA-Public Use
  Company Number: FR-ABBVIE-14P-056-1234350-00

PATIENT
  Age: 54 Year
  Sex: Male

DRUGS (5)
  1. ZECLAR [Suspect]
     Indication: BRONCHITIS
     Dates: start: 20140311, end: 20140316
  2. TEGRETOL [Interacting]
     Indication: EPILEPSY
     Route: 048
  3. KEPPRA [Concomitant]
     Indication: EPILEPSY
     Route: 048
  4. EPITOMAX [Concomitant]
     Indication: EPILEPSY
     Route: 048
  5. GARDENAL [Concomitant]
     Indication: EPILEPSY
     Route: 048

REACTIONS (4)
  - Cerebellar syndrome [Recovered/Resolved]
  - Gait disturbance [Recovered/Resolved]
  - Balance disorder [Recovered/Resolved]
  - Drug interaction [Unknown]
